FAERS Safety Report 9949401 (Version 1)
Quarter: 2014Q1

REPORT INFORMATION
  Report Type: Spontaneous
  Country: US (occurrence: US)
  Receive Date: 20140304
  Receipt Date: 20140304
  Transmission Date: 20141002
  Serious: No
  Sender: FDA-Public Use
  Company Number: US-PFIZER INC-2014059374

PATIENT
  Age: 62 Year
  Sex: Male
  Weight: 76.19 kg

DRUGS (7)
  1. LIPITOR [Suspect]
     Indication: BLOOD CHOLESTEROL
     Dosage: 40 MG, 1X/DAY
  2. LOSARTAN [Concomitant]
     Indication: HYPERTENSION
     Dosage: 50 MG, 1X/DAY
  3. KLOR-CON [Concomitant]
     Indication: BLOOD POTASSIUM DECREASED
     Dosage: 20 MG, 1X/DAY
  4. AMLODIPINE [Concomitant]
     Dosage: 2.5 MG, 1X/DAY
  5. ASPIRIN [Concomitant]
     Indication: CEREBROVASCULAR ACCIDENT PROPHYLAXIS
     Dosage: 81 MG, 1X/DAY
  6. WARFARIN [Concomitant]
     Dosage: UNK, (05 MG ON MONDAY AND 2.5 MG REST OF THE DAYS)
  7. ULTRACET [Concomitant]
     Dosage: ^500 MG^ TWO TIMES DAY

REACTIONS (1)
  - Dizziness [Not Recovered/Not Resolved]
